FAERS Safety Report 10771259 (Version 2)
Quarter: 2015Q2

REPORT INFORMATION
  Report Type: Spontaneous
  Country: US (occurrence: US)
  Receive Date: 20150206
  Receipt Date: 20150410
  Transmission Date: 20150821
  Serious: Yes (Other)
  Sender: FDA-Public Use
  Company Number: US-ASTRAZENECA-2015SE12029

PATIENT
  Age: 522 Month
  Sex: Female
  Weight: 96.2 kg

DRUGS (1)
  1. BYDUREON [Suspect]
     Active Substance: EXENATIDE
     Indication: TYPE 2 DIABETES MELLITUS
     Route: 058
     Dates: start: 20140725, end: 20150109

REACTIONS (3)
  - Abdominal pain [Unknown]
  - Pancreatitis [Recovered/Resolved]
  - Lipase increased [Unknown]

NARRATIVE: CASE EVENT DATE: 201412
